FAERS Safety Report 8232590-5 (Version None)
Quarter: 2012Q1

REPORT INFORMATION
  Report Type: 
  Country: None (occurrence: None)
  Receive Date: 20120323
  Receipt Date: 20120316
  Transmission Date: 20120608
  Serious: Yes (Hospitalization)
  Sender: FDA-Public Use
  Company Number: US-B.I. PHARMACEUTICALS,INC./RIDGEFIELD-2012-EU-01540GD

PATIENT
  Age: 84 Year
  Sex: Female
  Weight: 57 kg

DRUGS (7)
  1. LISINOPRIL [Suspect]
     Dosage: 40 MG
  2. FLUDROCORTISONE ACETATE [Concomitant]
     Dosage: 0.2 MG
  3. SERTRALINE HYDROCHLORIDE [Concomitant]
     Dosage: 50 MG
  4. SPIRONOLACTONE [Suspect]
     Dosage: 25 MG
  5. DRONEDARONE HCL [Concomitant]
     Indication: ATRIAL FIBRILLATION
     Dosage: 800 MG
     Route: 048
  6. METOPROLOL SUCCINATE [Concomitant]
     Indication: ATRIAL FIBRILLATION
     Dosage: 100 MG
     Route: 048
  7. DABIGATRAN [Suspect]
     Dosage: 300 MG

REACTIONS (11)
  - INTERNATIONAL NORMALISED RATIO INCREASED [None]
  - BLOOD PRESSURE SYSTOLIC INCREASED [None]
  - RENAL FAILURE ACUTE [None]
  - ACTIVATED PARTIAL THROMBOPLASTIN TIME PROLONGED [None]
  - HAEMOGLOBIN DECREASED [None]
  - ANAEMIA [None]
  - HYPERKALAEMIA [None]
  - DIARRHOEA HAEMORRHAGIC [None]
  - ARRHYTHMIA [None]
  - ATRIAL FIBRILLATION [None]
  - HAEMATOCRIT INCREASED [None]
